FAERS Safety Report 5620355-X (Version None)
Quarter: 2008Q1

REPORT INFORMATION
  Report Type: 
  Country: None (occurrence: None)
  Receive Date: 20080208
  Receipt Date: 20080129
  Transmission Date: 20080703
  Serious: Yes (Other)
  Sender: FDA-Public Use
  Company Number: US-ELI_LILLY_AND_COMPANY-US200711003232

PATIENT
  Sex: Male

DRUGS (7)
  1. BYETTA [Suspect]
     Dosage: 5 UG, 2/D
     Route: 065
     Dates: start: 20060502, end: 20060530
  2. BYETTA [Suspect]
     Dosage: 10 UG, 2/D
     Route: 065
     Dates: start: 20060530
  3. METFORMIN HCL [Concomitant]
  4. HYDROCODONE BITARTRATE [Concomitant]
  5. ZOCOR [Concomitant]
  6. NEXIUM [Concomitant]
  7. OXYCODONE HCL [Concomitant]

REACTIONS (7)
  - ADENOCARCINOMA [None]
  - DRY SKIN [None]
  - EYE IRRITATION [None]
  - HYPERGLYCAEMIA [None]
  - HYPERTENSION [None]
  - RHINORRHOEA [None]
  - VOMITING [None]
